FAERS Safety Report 7981741 (Version 2)
Quarter: 2012Q4

REPORT INFORMATION
  Report Type: 
  Country: CA (occurrence: CA)
  Receive Date: 20110608
  Receipt Date: 20121111
  Transmission Date: 20130627
  Serious: Yes (Hospitalization, Other)
  Sender: FDA-Public Use
  Company Number: PHMT2006CA02054

PATIENT
  Sex: Female

DRUGS (6)
  1. SANDOSTATIN LAR [Suspect]
     Indication: CARCINOID TUMOUR
     Dosage: 60 mg, QMO
     Route: 030
     Dates: start: 20060107
  2. HYDROCHLOROTHIAZIDE [Concomitant]
  3. INTERFERON ALFA [Concomitant]
  4. RANITIDINE [Concomitant]
  5. VASOTEC [Concomitant]
  6. WARFARIN [Concomitant]

REACTIONS (17)
  - Atrial fibrillation [Recovered/Resolved]
  - Cystitis [Unknown]
  - Insomnia [Unknown]
  - Flushing [Unknown]
  - Injection site reaction [Unknown]
  - Contusion [Unknown]
  - 5-hydroxyindolacetic acid in urine [Unknown]
  - Injection site mass [Unknown]
  - Injection site pain [Unknown]
  - Tooth disorder [Unknown]
  - Influenza like illness [Unknown]
  - Injection site haemorrhage [Unknown]
  - Rash macular [Unknown]
  - Bradycardia [Unknown]
  - Constipation [Unknown]
  - Fatigue [Unknown]
  - Diarrhoea [Unknown]
